FAERS Safety Report 9891797 (Version 1)
Quarter: 2014Q1

REPORT INFORMATION
  Report Type: Spontaneous
  Country: GR (occurrence: GR)
  Receive Date: 20140212
  Receipt Date: 20140212
  Transmission Date: 20141002
  Serious: Yes (Other)
  Sender: FDA-Public Use
  Company Number: GR-PFIZER INC-2014038117

PATIENT
  Sex: Female

DRUGS (1)
  1. GEODON [Suspect]
     Dosage: 20 MG, 1X/DAY
     Route: 048
     Dates: start: 20140207

REACTIONS (3)
  - Face oedema [Not Recovered/Not Resolved]
  - Local swelling [Unknown]
  - Dysphonia [Not Recovered/Not Resolved]
